FAERS Safety Report 21087758 (Version 1)
Quarter: 2022Q3

REPORT INFORMATION
  Report Type: Spontaneous
  Country: IN (occurrence: IN)
  Receive Date: 20220715
  Receipt Date: 20220715
  Transmission Date: 20221027
  Serious: Yes (Hospitalization, Other)
  Sender: FDA-Public Use
  Company Number: IN-GLAXOSMITHKLINE-INCH2022GSK024451

PATIENT

DRUGS (1)
  1. DICLOFENAC [Suspect]
     Active Substance: DICLOFENAC
     Indication: Pyrexia
     Dosage: UNK
     Route: 048

REACTIONS (8)
  - Toxic epidermal necrolysis [Recovering/Resolving]
  - Skin erosion [Recovering/Resolving]
  - Skin lesion [Recovering/Resolving]
  - Oral mucosa erosion [Recovering/Resolving]
  - Oral disorder [Recovering/Resolving]
  - Scab [Recovering/Resolving]
  - Conjunctival hyperaemia [Recovering/Resolving]
  - Lip haemorrhage [Recovering/Resolving]
